FAERS Safety Report 5469260-2 (Version None)
Quarter: 2007Q3

REPORT INFORMATION
  Report Type: 
  Country: None (occurrence: None)
  Receive Date: 20070925
  Receipt Date: 20070925
  Transmission Date: 20080115
  Serious: Yes (Other)
  Sender: FDA-Public Use
  Company Number: None

PATIENT
  Sex: Female
  Weight: 101.1521 kg

DRUGS (4)
  1. FENTANYL-25 [Suspect]
     Indication: NEUROPATHY
     Dosage: 25MCG/HR Q72HRS TRANSDERM
     Route: 062
     Dates: start: 20070801
  2. FENTANYL-25 [Suspect]
     Indication: PAIN
     Dosage: 25MCG/HR Q72HRS TRANSDERM
     Route: 062
     Dates: start: 20070801
  3. FENTANYL-12 [Suspect]
     Indication: NEUROPATHY
     Dosage: 12 MCG/HR # 2 Q 72 HRS TRANSDERM
     Route: 062
     Dates: start: 20070901
  4. FENTANYL-12 [Suspect]
     Indication: PAIN
     Dosage: 12 MCG/HR # 2 Q 72 HRS TRANSDERM
     Route: 062
     Dates: start: 20070901

REACTIONS (3)
  - DIZZINESS [None]
  - PRESYNCOPE [None]
  - THERAPEUTIC RESPONSE UNEXPECTED WITH DRUG SUBSTITUTION [None]
